FAERS Safety Report 9667634 (Version 1)
Quarter: 2013Q4

REPORT INFORMATION
  Report Type: Spontaneous
  Country: US (occurrence: US)
  Receive Date: 20131101
  Receipt Date: 20131101
  Transmission Date: 20140711
  Serious: Yes (Other)
  Sender: FDA-Public Use
  Company Number: US-ORACLE-2012S1000020

PATIENT
  Age: 53 Year
  Sex: Male
  Weight: 70.31 kg

DRUGS (5)
  1. KRYSTEXXA INJECTION [Suspect]
     Indication: GOUT
     Route: 042
     Dates: start: 20120105, end: 20120105
  2. KRYSTEXXA INJECTION [Suspect]
     Indication: GOUT
     Route: 042
     Dates: start: 20120315, end: 20120315
  3. BENADRYL /00945501/ [Concomitant]
     Indication: PREMEDICATION
     Route: 042
     Dates: start: 20120105, end: 20120315
  4. TYLENOL /00020001/ [Concomitant]
     Indication: PREMEDICATION
     Route: 048
     Dates: start: 20120105, end: 20120315
  5. SOLUMEDROL [Concomitant]
     Indication: PREMEDICATION
     Route: 042
     Dates: start: 20120105, end: 20120315

REACTIONS (1)
  - Anaphylactic reaction [Recovered/Resolved]
